FAERS Safety Report 7864186-9 (Version None)
Quarter: 2011Q4

REPORT INFORMATION
  Report Type: 
  Country: None (occurrence: None)
  Receive Date: 20111028
  Receipt Date: 20111028
  Transmission Date: 20120403
  Serious: Yes (Hospitalization, Other)
  Sender: FDA-Public Use
  Company Number: JP-PFIZER INC-2011209817

PATIENT
  Age: 74 Year
  Sex: Female
  Weight: 28.5 kg

DRUGS (10)
  1. ZOLOFT [Suspect]
     Indication: ANTIDEPRESSANT THERAPY
     Dosage: 25 MG, 1X/DAY
     Route: 048
     Dates: start: 20110823, end: 20110904
  2. ALENDRONATE SODIUM [Suspect]
     Indication: OSTEOPOROSIS
     Dosage: 75 MG, WEEKLY
     Route: 048
     Dates: start: 20110823, end: 20110830
  3. PRAMIPEXOLE DIHYDROCHLORIDE [Concomitant]
     Indication: PARKINSON'S DISEASE
     Dosage: 0.5 MG, 3X/DAY
     Route: 048
     Dates: start: 20110213
  4. CEROCRAL [Concomitant]
     Indication: PARKINSON'S DISEASE
     Dosage: 20 MG, 3X/DAY
     Route: 048
     Dates: start: 20110828
  5. GIBONZ [Concomitant]
     Indication: ANALGESIC THERAPY
     Dosage: 1 MG, 1X/DAY
     Route: 048
     Dates: start: 20110213
  6. MADOPAR [Concomitant]
     Indication: PARKINSON'S DISEASE
     Dosage: 1 DF, 3X/DAY
     Route: 048
     Dates: start: 20110213
  7. DICLOFENAC SODIUM [Suspect]
     Indication: ANALGESIC THERAPY
     Dosage: 25 MG, 3X/DAY
     Route: 048
     Dates: start: 20110803, end: 20110904
  8. MUCOSTA [Concomitant]
     Indication: GASTRITIS PROPHYLAXIS
     Dosage: 100 MG, 3X/DAY
     Route: 048
     Dates: start: 20110803, end: 20110904
  9. DEPAS [Concomitant]
     Indication: SLEEP DISORDER THERAPY
     Dosage: 0.5 MG, 1X/DAY
     Route: 048
     Dates: start: 20110213
  10. NEUROTROPIN [Suspect]
     Indication: ANALGESIC THERAPY
     Dosage: 4 UNITS 4 TIMES A DAY
     Route: 048
     Dates: start: 20110823, end: 20110904

REACTIONS (4)
  - HYPOKINESIA [None]
  - DECREASED APPETITE [None]
  - BLOOD CREATINE PHOSPHOKINASE INCREASED [None]
  - MALAISE [None]
